FAERS Safety Report 4265665-6 (Version None)
Quarter: 2004Q1

REPORT INFORMATION
  Report Type: 
  Country: None (occurrence: None)
  Receive Date: 20040107
  Receipt Date: 20040105
  Transmission Date: 20041129
  Serious: Yes (Death, Life-Threatening)
  Sender: FDA-Public Use
  Company Number: US-GLAXOSMITHKLINE-A0491316A

PATIENT

DRUGS (1)
  1. LANOXIN [Suspect]
     Indication: ILL-DEFINED DISORDER
     Route: 042

REACTIONS (1)
  - DEATH [None]
